FAERS Safety Report 7350256-0 (Version None)
Quarter: 2011Q1

REPORT INFORMATION
  Report Type: 
  Country: None (occurrence: None)
  Receive Date: 20110309
  Receipt Date: 20110309
  Transmission Date: 20110831
  Serious: No
  Sender: FDA-Public Use
  Company Number: None

PATIENT
  Sex: Male
  Weight: 60.6 kg

DRUGS (13)
  1. OXYCODONE [Concomitant]
  2. NABUMENTONE [Concomitant]
  3. LEXAPRO [Concomitant]
  4. AMBIEN [Concomitant]
  5. PRILOSEC [Concomitant]
  6. VICODIN ES [Concomitant]
  7. BORTEZOMIB [Suspect]
     Indication: DIFFUSE LARGE B-CELL LYMPHOMA
     Dosage: 1.7 MG, EVERY 4 DAYS, IV
     Route: 042
     Dates: start: 20101223, end: 20110103
  8. RITALIN [Concomitant]
  9. COMPAZINE [Concomitant]
  10. EVEROLIMUS (RAD001) 5MG, NOVARTIS [Suspect]
     Indication: DIFFUSE LARGE B-CELL LYMPHOMA
     Dosage: 5MG, QD, PO
     Route: 048
     Dates: start: 20101223, end: 20110110
  11. ZOFRAN [Concomitant]
  12. MORPHINE CONCENTRATE [Concomitant]
  13. DULCOLAX [Concomitant]

REACTIONS (12)
  - SYNCOPE [None]
  - CHILLS [None]
  - THROMBOCYTOPENIA [None]
  - FOOT FRACTURE [None]
  - DEHYDRATION [None]
  - BILE DUCT STENOSIS [None]
  - PANCREATITIS ACUTE [None]
  - ALANINE AMINOTRANSFERASE INCREASED [None]
  - NON-HODGKIN'S LYMPHOMA [None]
  - NEOPLASM MALIGNANT [None]
  - ASPARTATE AMINOTRANSFERASE INCREASED [None]
  - BLOOD BILIRUBIN INCREASED [None]
